FAERS Safety Report 4764918-2 (Version None)
Quarter: 2005Q3

REPORT INFORMATION
  Report Type: 
  Country: None (occurrence: None)
  Receive Date: 20050909
  Receipt Date: 20050831
  Transmission Date: 20060218
  Serious: Yes (Death, Hospitalization)
  Sender: FDA-Public Use
  Company Number: US-JNJFOC-20050901090

PATIENT
  Sex: Male
  Weight: 68.04 kg

DRUGS (4)
  1. DURAGESIC-100 [Suspect]
     Route: 062
  2. DURAGESIC-100 [Suspect]
     Route: 062
  3. DURAGESIC-100 [Suspect]
     Route: 062
  4. PREVACID [Concomitant]
     Indication: GASTROOESOPHAGEAL REFLUX DISEASE
     Route: 048

REACTIONS (7)
  - CONSTIPATION [None]
  - DYSPHAGIA [None]
  - HYPERHIDROSIS [None]
  - LIP AND/OR ORAL CAVITY CANCER [None]
  - PRURITUS GENERALISED [None]
  - SWELLING FACE [None]
  - THERAPEUTIC RESPONSE DECREASED [None]
